FAERS Safety Report 20039408 (Version 3)
Quarter: 2022Q1

REPORT INFORMATION
  Report Type: Spontaneous
  Country: CZ (occurrence: CZ)
  Receive Date: 20211105
  Receipt Date: 20220128
  Transmission Date: 20220423
  Serious: Yes (Other)
  Sender: FDA-Public Use
  Company Number: CZ-TEVA-2021-CZ-1973600

PATIENT
  Age: 77 Year
  Sex: Male

DRUGS (14)
  1. SOLIFENACIN [Suspect]
     Active Substance: SOLIFENACIN
     Indication: Urinary tract infection
     Dosage: 10 MILLIGRAM DAILY; 10 MG 1-0-0
     Route: 065
  2. LEVETIRACETAM [Suspect]
     Active Substance: LEVETIRACETAM
     Indication: Product used for unknown indication
     Dosage: 1000 MILLIGRAM DAILY; 500 MG 1-0-1
     Route: 065
  3. GABAPENTIN [Suspect]
     Active Substance: GABAPENTIN
     Indication: Product used for unknown indication
     Dosage: 300 MILLIGRAM DAILY; 100 MG 1-1-1
     Route: 065
  4. BISOPROLOL [Concomitant]
     Active Substance: BISOPROLOL
     Indication: Product used for unknown indication
     Dosage: 5 MILLIGRAM DAILY; BISOPROLOL 5 MG 1-0-0
     Route: 065
  5. PERINDOPRIL [Concomitant]
     Active Substance: PERINDOPRIL
     Indication: Product used for unknown indication
     Dosage: 4 MILLIGRAM DAILY; PERINDOPRIL 4 MG 1-0-0
     Route: 065
  6. SPIRONOLACTONE [Concomitant]
     Active Substance: SPIRONOLACTONE
     Indication: Product used for unknown indication
     Dosage: 25 MILLIGRAM DAILY; SPIRONOLACTONE 25 MG TBL 1-0-0
     Route: 048
  7. LERCANIDIPINE [Concomitant]
     Active Substance: LERCANIDIPINE
     Indication: Product used for unknown indication
     Dosage: 20 MILLIGRAM DAILY; LERCANIDIPINE 20MG-0-0-1
     Route: 065
  8. OMEPRAZOLE [Concomitant]
     Active Substance: OMEPRAZOLE
     Indication: Product used for unknown indication
     Dosage: 20 MILLIGRAM DAILY; OMEPRAZOLE 20 MG 1-0-0
     Route: 065
  9. ATORVASTATIN [Concomitant]
     Active Substance: ATORVASTATIN
     Indication: Product used for unknown indication
     Dosage: 15 MILLIGRAM DAILY; ATORVASTATIN-0-01
     Route: 065
  10. ASPIRIN [Concomitant]
     Active Substance: ASPIRIN
     Indication: Product used for unknown indication
     Dosage: 100 MILLIGRAM DAILY; ACETYLSALICYLIC ACID 100 MG 1-0-0
     Route: 065
  11. DARIFENACIN [Concomitant]
     Active Substance: DARIFENACIN
     Indication: Product used for unknown indication
     Dosage: 15 MILLIGRAM DAILY; DARIFENACIN 15 MG 1-0-0
     Route: 065
  12. DESMOPRESSIN [Concomitant]
     Active Substance: DESMOPRESSIN
     Indication: Product used for unknown indication
     Dosage: 240 MICROGRAM DAILY; DESMOPRESSIN 60 UG 0-0-0-1
     Route: 065
  13. SODIUM CHLORIDE [Concomitant]
     Active Substance: SODIUM CHLORIDE
     Indication: Product used for unknown indication
     Dosage: 2000 MILLIGRAM DAILY; NACL 1,000 MG (IPLP CAPSULES) 1-0-1
     Route: 048
  14. DOXAZOSIN [Concomitant]
     Active Substance: DOXAZOSIN MESYLATE
     Indication: Product used for unknown indication
     Dosage: 4 MILLIGRAM DAILY; DOXAZOSIN 4 MG TBL 0-0-1
     Route: 048

REACTIONS (3)
  - Cognitive disorder [Unknown]
  - Hyponatraemia [Unknown]
  - Duplicate therapy error [Unknown]
